FAERS Safety Report 19416163 (Version 1)
Quarter: 2021Q2

REPORT INFORMATION
  Report Type: Spontaneous
  Country: US (occurrence: US)
  Receive Date: 20210615
  Receipt Date: 20210615
  Transmission Date: 20210717
  Serious: Yes (Hospitalization)
  Sender: FDA-Public Use
  Company Number: US-JNJFOC-20210612877

PATIENT
  Age: 13 Year
  Sex: Female

DRUGS (1)
  1. PARACETAMOL [Suspect]
     Active Substance: ACETAMINOPHEN
     Indication: PRODUCT USED FOR UNKNOWN INDICATION
     Dosage: 30 TABSPILLSCAPSULES
     Route: 048
     Dates: start: 20210602, end: 20210602

REACTIONS (4)
  - Overdose [Unknown]
  - Liver function test increased [Recovered/Resolved]
  - Coagulopathy [Recovered/Resolved]
  - Suicide attempt [Unknown]

NARRATIVE: CASE EVENT DATE: 202106
